FAERS Safety Report 18614380 (Version 1)
Quarter: 2020Q4

REPORT INFORMATION
  Report Type: Spontaneous
  Country: FR (occurrence: FR)
  Receive Date: 20201215
  Receipt Date: 20201215
  Transmission Date: 20210114
  Serious: Yes (Hospitalization, Other)
  Sender: FDA-Public Use
  Company Number: FR-RECORDATI RARE DISEASES-2102984

PATIENT
  Age: 61 Year
  Sex: Female

DRUGS (5)
  1. STAGID [Concomitant]
     Active Substance: METFORMIN PAMOATE
  2. SIGNIFOR [Suspect]
     Active Substance: PASIREOTIDE DIASPARTATE
     Indication: PITUITARY-DEPENDENT CUSHING^S SYNDROME
     Route: 058
     Dates: start: 201203, end: 20200906
  3. SIGNIFOR [Suspect]
     Active Substance: PASIREOTIDE DIASPARTATE
     Route: 058
     Dates: start: 201603, end: 20200906
  4. LEVOTHYROX [Concomitant]
     Active Substance: LEVOTHYROXINE
  5. XELEVIA [Concomitant]
     Active Substance: SITAGLIPTIN PHOSPHATE

REACTIONS (5)
  - Electrocardiogram QT prolonged [Recovered/Resolved]
  - Diabetes mellitus [Not Recovered/Not Resolved]
  - Liver function test abnormal [Unknown]
  - Myocardial infarction [Recovered/Resolved with Sequelae]
  - Cardiac failure [Not Recovered/Not Resolved]

NARRATIVE: CASE EVENT DATE: 2017
